FAERS Safety Report 15360318 (Version 1)
Quarter: 2018Q3

REPORT INFORMATION
  Report Type: Spontaneous
  Country: US (occurrence: US)
  Receive Date: 20180907
  Receipt Date: 20180907
  Transmission Date: 20181010
  Serious: No
  Sender: FDA-Public Use
  Company Number: US-PFIZER INC-2018354390

PATIENT
  Age: 3 Year
  Sex: Male

DRUGS (1)
  1. GENOTROPIN [Suspect]
     Active Substance: SOMATROPIN
     Dosage: 0.8 MG, DAILY
     Dates: start: 20151016

REACTIONS (10)
  - Blood chloride increased [Unknown]
  - Haematocrit increased [Unknown]
  - Blood thyroid stimulating hormone increased [Unknown]
  - Blood calcium increased [Unknown]
  - Haemoglobin increased [Unknown]
  - Mean platelet volume decreased [Unknown]
  - Blood sodium increased [Unknown]
  - Carbon dioxide increased [Unknown]
  - Blood albumin increased [Unknown]
  - Monocyte percentage increased [Unknown]

NARRATIVE: CASE EVENT DATE: 20160216
